FAERS Safety Report 15036516 (Version 3)
Quarter: 2018Q4

REPORT INFORMATION
  Report Type: Report from Study
  Country: DE (occurrence: DE)
  Receive Date: 20180620
  Receipt Date: 20181115
  Transmission Date: 20190204
  Serious: Yes (Hospitalization)
  Sender: FDA-Public Use
  Company Number: DE-PFIZER INC-2018245763

PATIENT
  Age: 31 Year
  Sex: Female
  Weight: 50 kg

DRUGS (4)
  1. PENICILLIN [Suspect]
     Active Substance: PENICILLIN
  2. GABAPENTIN. [Suspect]
     Active Substance: GABAPENTIN
     Indication: NEURALGIA
     Dosage: 2400 MG, QD
     Route: 048
     Dates: start: 20160509
  3. GILENYA [Suspect]
     Active Substance: FINGOLIMOD HYDROCHLORIDE
     Indication: MULTIPLE SCLEROSIS
     Dosage: 0.5 MG, QD
     Route: 048
     Dates: start: 20141208, end: 20170501
  4. CEPHALOSPORINS [Suspect]
     Active Substance: UNSPECIFIED INGREDIENT

REACTIONS (19)
  - Migraine [Recovered/Resolved]
  - Dyspepsia [Unknown]
  - Cystitis [Recovered/Resolved]
  - Diarrhoea [Unknown]
  - Dysphagia [Recovered/Resolved]
  - Alanine aminotransferase increased [Unknown]
  - White blood cell count decreased [Recovered/Resolved]
  - Pancreatitis [Recovered/Resolved]
  - Cholecystitis [Recovered/Resolved]
  - Drug hypersensitivity [Not Recovered/Not Resolved]
  - Respiratory disorder [Recovered/Resolved]
  - Decreased appetite [Recovered/Resolved]
  - Lhermitte^s sign [Recovered/Resolved]
  - Cholelithiasis [Recovered/Resolved]
  - Influenza [Recovered/Resolved]
  - Gastritis [Unknown]
  - Diarrhoea [Recovered/Resolved]
  - Nausea [Recovered/Resolved]
  - Abdominal pain upper [Recovered/Resolved]

NARRATIVE: CASE EVENT DATE: 20150101
